FAERS Safety Report 8581618-1 (Version None)
Quarter: 2012Q3

REPORT INFORMATION
  Report Type: 
  Country: None (occurrence: None)
  Receive Date: 20120801
  Receipt Date: 20120801
  Transmission Date: 20120928
  Serious: Yes (Other)
  Sender: FDA-Public Use
  Company Number: None

PATIENT
  Age: 52 Year
  Sex: Female
  Weight: 54.4316 kg

DRUGS (2)
  1. FLUTICASONE PROPIONATE [Concomitant]
  2. AZITHROMYCIN [Suspect]
     Indication: EAR INFECTION
     Dosage: INITIAL 2 TABS, THEN ONE DAILY DAILY PO
     Route: 048
     Dates: start: 20120723, end: 20120725

REACTIONS (2)
  - URTICARIA [None]
  - LIP SWELLING [None]
